FAERS Safety Report 7315715-5 (Version None)
Quarter: 2011Q1

REPORT INFORMATION
  Report Type: 
  Country: None (occurrence: None)
  Receive Date: 20110225
  Receipt Date: 20101221
  Transmission Date: 20110831
  Serious: Yes (Other)
  Sender: FDA-Public Use
  Company Number: US-BAYER-201030304NA

PATIENT
  Sex: Female
  Weight: 65.76 kg

DRUGS (4)
  1. CYMBALTA [Concomitant]
     Indication: PRODUCT USED FOR UNKNOWN INDICATION
  2. YASMIN [Suspect]
     Indication: CONTRACEPTION
     Dosage: UNK UNK, UNK
     Route: 048
     Dates: start: 20010101, end: 20050101
  3. MINOCYCLINE HCL [Concomitant]
     Indication: PRODUCT USED FOR UNKNOWN INDICATION
  4. YAZ [Suspect]
     Indication: CONTRACEPTION
     Route: 048
     Dates: start: 20050101

REACTIONS (10)
  - SCAR [None]
  - NAUSEA [None]
  - ABDOMINAL PAIN [None]
  - WEIGHT DECREASED [None]
  - DYSPEPSIA [None]
  - BILIARY DYSKINESIA [None]
  - VOMITING [None]
  - MALAISE [None]
  - POST GASTRIC SURGERY SYNDROME [None]
  - APHAGIA [None]
